FAERS Safety Report 6137095-3 (Version None)
Quarter: 2009Q1

REPORT INFORMATION
  Report Type: 
  Country: None (occurrence: None)
  Receive Date: 20090330
  Receipt Date: 20090317
  Transmission Date: 20090719
  Serious: Yes (Hospitalization)
  Sender: FDA-Public Use
  Company Number: FR-ROCHE-608622

PATIENT
  Sex: Female
  Weight: 68 kg

DRUGS (6)
  1. CELLCEPT [Suspect]
     Indication: RENAL TRANSPLANT
     Route: 048
     Dates: start: 20081031, end: 20081031
  2. CELLCEPT [Suspect]
     Dosage: DRUG DISCONTINUED.
     Route: 048
     Dates: start: 20081220, end: 20090209
  3. PROGRAF [Suspect]
     Indication: RENAL TRANSPLANT
     Route: 048
  4. PROGRAF [Suspect]
     Dosage: DOSE REDUCED.
     Route: 048
  5. CORTICOSTEROIDS [Concomitant]
     Indication: DRUG USE FOR UNKNOWN INDICATION
     Dosage: DRUG NAME REPORTED AS CORTICOIDS.
     Route: 065
  6. CORTANCYL [Concomitant]
     Indication: DRUG USE FOR UNKNOWN INDICATION

REACTIONS (4)
  - DIARRHOEA [None]
  - FLATULENCE [None]
  - GASTROINTESTINAL DISORDER [None]
  - PERITONEAL EFFUSION [None]
